FAERS Safety Report 9346573 (Version 1)
Quarter: 2013Q2

REPORT INFORMATION
  Report Type: Spontaneous
  Country: US (occurrence: US)
  Receive Date: 20130613
  Receipt Date: 20130613
  Transmission Date: 20140414
  Serious: Yes (Hospitalization)
  Sender: FDA-Public Use
  Company Number: US-BAYER-2013-070866

PATIENT
  Age: 44 Year
  Sex: Female
  Weight: 54 kg

DRUGS (3)
  1. YAZ [Suspect]
  2. DARVOCET [Concomitant]
     Dosage: UNK
     Dates: start: 20080714
  3. XANAX [Concomitant]
     Dosage: UNK
     Dates: start: 20080714

REACTIONS (1)
  - Pulmonary embolism [None]
